FAERS Safety Report 16868481 (Version 1)
Quarter: 2019Q3

REPORT INFORMATION
  Report Type: Spontaneous
  Country: US (occurrence: US)
  Receive Date: 20190930
  Receipt Date: 20190930
  Transmission Date: 20191005
  Serious: No
  Sender: FDA-Public Use
  Company Number: US-PFIZER INC-2019417626

PATIENT
  Age: 60 Year
  Sex: Female

DRUGS (1)
  1. METOPROLOL TARTRATE. [Suspect]
     Active Substance: METOPROLOL TARTRATE
     Dosage: UNK (TAKE HALF THE DOSE FOR 2 WEEKS AND THEN STOP TAKING IT)

REACTIONS (4)
  - Vertigo [Recovered/Resolved]
  - Dizziness [Unknown]
  - Tooth infection [Unknown]
  - Dry mouth [Not Recovered/Not Resolved]
